FAERS Safety Report 25906494 (Version 1)
Quarter: 2025Q4

REPORT INFORMATION
  Report Type: Spontaneous
  Country: CN (occurrence: CN)
  Receive Date: 20251010
  Receipt Date: 20251010
  Transmission Date: 20260117
  Serious: Yes (Life-Threatening, Hospitalization, Other)
  Sender: BAYER HEALTHCARE PHARMACEUTICALS INC.
  Company Number: CN-BAYER-2025A132554

PATIENT
  Age: 74 Year
  Sex: Male
  Weight: 65 kg

DRUGS (2)
  1. ULTRAVIST [Suspect]
     Active Substance: IOPROMIDE
     Indication: Arteriogram
     Dosage: 50 ML, ONCE
     Route: 042
     Dates: start: 20251006, end: 20251006
  2. ULTRAVIST [Suspect]
     Active Substance: IOPROMIDE
     Indication: Cerebral infarction

REACTIONS (6)
  - Contrast media allergy [Unknown]
  - Pyrexia [Unknown]
  - Blood pressure increased [None]
  - Heart rate increased [Recovering/Resolving]
  - Blood pressure immeasurable [None]
  - Chills [Recovering/Resolving]

NARRATIVE: CASE EVENT DATE: 20251006
